FAERS Safety Report 22611683 (Version 9)
Quarter: 2023Q4

REPORT INFORMATION
  Report Type: Spontaneous
  Country: PL (occurrence: PL)
  Receive Date: 20230616
  Receipt Date: 20231103
  Transmission Date: 20240110
  Serious: Yes (Life-Threatening, Other)
  Sender: FDA-Public Use
  Company Number: PL-BAUSCH-BL-2023-009258

PATIENT
  Age: 60 Year
  Sex: Male

DRUGS (23)
  1. LORAZEPAM [Suspect]
     Active Substance: LORAZEPAM
     Indication: Depressed mood
     Dosage: 0.5-1 MG, SINGLE DOSES
     Route: 065
  2. LORAZEPAM [Suspect]
     Active Substance: LORAZEPAM
     Indication: Psychomotor retardation
     Dosage: INCREASED
     Route: 065
  3. LORAZEPAM [Suspect]
     Active Substance: LORAZEPAM
     Indication: Anxiety
     Dosage: REDUCED
     Route: 065
  4. LORAZEPAM [Suspect]
     Active Substance: LORAZEPAM
     Indication: Somatic symptom disorder
  5. LORAZEPAM [Suspect]
     Active Substance: LORAZEPAM
     Indication: Sleep disorder
  6. LORAZEPAM [Suspect]
     Active Substance: LORAZEPAM
     Indication: Hyperhidrosis
  7. VENLAFAXINE [Suspect]
     Active Substance: VENLAFAXINE HYDROCHLORIDE
     Indication: Depressed mood
     Dosage: 75-150MG
     Route: 065
  8. VENLAFAXINE [Suspect]
     Active Substance: VENLAFAXINE HYDROCHLORIDE
     Indication: Psychomotor retardation
     Route: 065
  9. VENLAFAXINE [Suspect]
     Active Substance: VENLAFAXINE HYDROCHLORIDE
     Indication: Anxiety
  10. MIANSERIN [Suspect]
     Active Substance: MIANSERIN
     Indication: Sleep disorder
     Dosage: QD (BEFORE NIGHT)
     Route: 065
  11. PROMETHAZINE [Suspect]
     Active Substance: PROMETHAZINE HYDROCHLORIDE
     Indication: Anxiety
     Dosage: UP TO 100 MG
     Route: 065
  12. HYDROXYZINE [Suspect]
     Active Substance: HYDROXYZINE HYDROCHLORIDE
     Indication: Anxiety
     Dosage: UP TO 125 MG
     Route: 065
  13. ZOLPIDEM [Suspect]
     Active Substance: ZOLPIDEM TARTRATE
     Indication: Bipolar disorder
     Dosage: AT NIGHT
     Route: 065
  14. ZOLPIDEM [Suspect]
     Active Substance: ZOLPIDEM TARTRATE
     Indication: Depression
  15. LITHIUM CARBONATE [Suspect]
     Active Substance: LITHIUM CARBONATE
     Indication: Depression
     Dosage: 1250-1500 MG
     Route: 065
  16. LITHIUM CARBONATE [Suspect]
     Active Substance: LITHIUM CARBONATE
     Route: 065
  17. REBOXETINE [Suspect]
     Active Substance: REBOXETINE
     Indication: Depression
     Route: 065
  18. REBOXETINE [Suspect]
     Active Substance: REBOXETINE
     Route: 065
  19. PAROXETINE [Suspect]
     Active Substance: PAROXETINE
     Indication: Anxiety
     Dosage: DOSES INCREASING UP TO 30 MG
     Route: 065
  20. PAROXETINE [Suspect]
     Active Substance: PAROXETINE
     Dosage: INCREASED
     Route: 065
  21. QUETIAPINE [Suspect]
     Active Substance: QUETIAPINE
     Indication: Anxiety
     Dosage: DOSES INCREASING
     Route: 065
  22. LAMOTRIGINE [Suspect]
     Active Substance: LAMOTRIGINE
     Indication: Anxiety
     Dosage: UP TO 150 MG
     Route: 065
  23. LAMOTRIGINE [Suspect]
     Active Substance: LAMOTRIGINE
     Indication: Psychomotor retardation

REACTIONS (16)
  - Therapy partial responder [Unknown]
  - Drug dependence [Recovered/Resolved]
  - Drug abuse [Unknown]
  - Therapeutic product effect incomplete [Unknown]
  - Withdrawal syndrome [Recovered/Resolved]
  - Sleep disorder [Recovering/Resolving]
  - Fear [Recovering/Resolving]
  - Impaired work ability [Recovering/Resolving]
  - Cognitive disorder [Recovering/Resolving]
  - Disturbance in attention [Recovering/Resolving]
  - Depressed mood [Recovering/Resolving]
  - Anxiety [Recovering/Resolving]
  - Depression [Recovering/Resolving]
  - Hepatic enzyme increased [Unknown]
  - Therapeutic response decreased [Unknown]
  - Off label use [Unknown]
